FAERS Safety Report 9502182 (Version 1)
Quarter: 2013Q3

REPORT INFORMATION
  Report Type: Report from Study
  Country: FR (occurrence: FR)
  Receive Date: 20130905
  Receipt Date: 20130905
  Transmission Date: 20140515
  Serious: Yes (Other)
  Sender: FDA-Public Use
  Company Number: PHHY2013FR097138

PATIENT
  Sex: Female

DRUGS (1)
  1. STI571 [Suspect]
     Dates: start: 20110610

REACTIONS (3)
  - Hepatocellular injury [Unknown]
  - Abdominal pain upper [Unknown]
  - Oedema peripheral [Unknown]
